FAERS Safety Report 15563390 (Version 2)
Quarter: 2019Q2

REPORT INFORMATION
  Report Type: Report from Study
  Country: US (occurrence: US)
  Receive Date: 20181029
  Receipt Date: 20190425
  Transmission Date: 20190711
  Serious: Yes (Hospitalization)
  Sender: FDA-Public Use
  Company Number: US-ACTELION-A-NJ2018-180617

PATIENT
  Age: 27 Year
  Sex: Female

DRUGS (19)
  1. WARFARIN [Concomitant]
     Active Substance: WARFARIN
  2. MECLIZINE [Concomitant]
     Active Substance: MECLIZINE HYDROCHLORIDE
  3. SIMVASTATIN. [Concomitant]
     Active Substance: SIMVASTATIN
  4. MAPAP [Concomitant]
     Active Substance: ACETAMINOPHEN
  5. LORATADINE. [Concomitant]
     Active Substance: LORATADINE
  6. SILDENAFIL. [Concomitant]
     Active Substance: SILDENAFIL
  7. FAMOTIDINE. [Concomitant]
     Active Substance: FAMOTIDINE
  8. AMOXICILLIN. [Concomitant]
     Active Substance: AMOXICILLIN
  9. TRAMADOL. [Concomitant]
     Active Substance: TRAMADOL
  10. OPSUMIT [Suspect]
     Active Substance: MACITENTAN
     Indication: PULMONARY ARTERIAL HYPERTENSION
     Dosage: 10 MG, QD
     Route: 048
     Dates: start: 20180821
  11. HYDROCODONE BITARTRATE AND ACETAMINOPHEN [Concomitant]
     Active Substance: ACETAMINOPHEN\HYDROCODONE BITARTRATE
  12. IBUPROFEN. [Concomitant]
     Active Substance: IBUPROFEN
  13. AMOXICILINA + CLAVUL POTASSIO [Concomitant]
  14. NITROFURANTIN [Concomitant]
     Active Substance: NITROFURANTOIN
  15. PENICILLIN V POTASSIUM. [Concomitant]
     Active Substance: PENICILLIN V POTASSIUM
  16. FLUTICASONE. [Concomitant]
     Active Substance: FLUTICASONE
  17. ONDANSETRON [Concomitant]
     Active Substance: ONDANSETRON
  18. ASPIRIN. [Concomitant]
     Active Substance: ASPIRIN
  19. CEPHALEXIN. [Concomitant]
     Active Substance: CEPHALEXIN

REACTIONS (4)
  - Hospitalisation [Unknown]
  - Malaise [Unknown]
  - Cerebrovascular accident [Unknown]
  - Vomiting [Unknown]

NARRATIVE: CASE EVENT DATE: 201810
